FAERS Safety Report 8283512-2 (Version None)
Quarter: 2012Q2

REPORT INFORMATION
  Report Type: 
  Country: None (occurrence: None)
  Receive Date: 20120413
  Receipt Date: 20120405
  Transmission Date: 20120825
  Serious: Yes (Hospitalization, Other)
  Sender: FDA-Public Use
  Company Number: PHHY2012US009261

PATIENT
  Age: 52 Year
  Sex: Male
  Weight: 100 kg

DRUGS (18)
  1. WARFARIN SODIUM [Concomitant]
  2. NAFCILLIN [Suspect]
     Indication: CELLULITIS
  3. DAPTOMYCIN [Suspect]
     Indication: STAPHYLOCOCCAL BACTERAEMIA
  4. FUROSEMIDE [Concomitant]
  5. ASPIRIN [Concomitant]
  6. INSULIN [Concomitant]
  7. POTASSIUM CHLORIDE [Concomitant]
  8. NAFCILLIN [Suspect]
     Indication: STAPHYLOCOCCAL BACTERAEMIA
  9. METFORMIN HCL [Concomitant]
  10. SPIRONOLACTONE [Concomitant]
  11. AMLODIPINE [Concomitant]
  12. RISEDRONATE SODIUM [Concomitant]
  13. OXYCODONE HCL AND ACETAMINOPHEN [Concomitant]
  14. DAPTOMYCIN [Suspect]
     Indication: CELLULITIS STAPHYLOCOCCAL
     Dosage: UNK
     Dates: start: 20070301, end: 20070301
  15. HYDRALAZINE HCL [Concomitant]
  16. METOPROLOL TARTRATE [Concomitant]
  17. VALSARTAN [Concomitant]
  18. STOOL SOFTENER [Concomitant]

REACTIONS (36)
  - AXILLARY VEIN THROMBOSIS [None]
  - MYCOBACTERIUM AVIUM COMPLEX INFECTION [None]
  - GASTROINTESTINAL INFLAMMATION [None]
  - PARASPINAL ABSCESS [None]
  - DYSSTASIA [None]
  - MUSCULAR WEAKNESS [None]
  - DIVERTICULAR PERFORATION [None]
  - WHITE BLOOD CELL COUNT INCREASED [None]
  - OEDEMA PERIPHERAL [None]
  - PAIN IN EXTREMITY [None]
  - ADRENAL DISORDER [None]
  - DEEP VEIN THROMBOSIS [None]
  - GENERAL PHYSICAL HEALTH DETERIORATION [None]
  - MALAISE [None]
  - SKIN STRIAE [None]
  - SUBCLAVIAN VEIN THROMBOSIS [None]
  - PSOAS ABSCESS [None]
  - RENAL FAILURE [None]
  - CUSHINGOID [None]
  - HYPERADRENOCORTICISM [None]
  - ECCHYMOSIS [None]
  - FATIGUE [None]
  - CONTUSION [None]
  - TRANSAMINASES INCREASED [None]
  - MENTAL STATUS CHANGES [None]
  - SKIN HYPERPIGMENTATION [None]
  - ABDOMINAL DISTENSION [None]
  - PULMONARY EMBOLISM [None]
  - GASTROINTESTINAL SOUNDS ABNORMAL [None]
  - LYMPHADENOPATHY [None]
  - INTERVERTEBRAL DISCITIS [None]
  - BACK PAIN [None]
  - SUBDIAPHRAGMATIC ABSCESS [None]
  - ABNORMAL BEHAVIOUR [None]
  - ADRENAL ADENOMA [None]
  - IRRITABILITY [None]
